FAERS Safety Report 10283150 (Version 1)
Quarter: 2014Q3

REPORT INFORMATION
  Report Type: Spontaneous
  Country: IT (occurrence: IT)
  Receive Date: 20140708
  Receipt Date: 20140708
  Transmission Date: 20150326
  Serious: Yes (Other)
  Sender: FDA-Public Use
  Company Number: PHHY2014IT081932

PATIENT
  Age: 63 Year
  Sex: Male

DRUGS (4)
  1. RISPERIDONE. [Suspect]
     Active Substance: RISPERIDONE
     Indication: BIPOLAR DISORDER
     Dosage: 3 MG, QD
     Route: 048
     Dates: start: 20140416, end: 20140605
  2. GABAPENTIN. [Suspect]
     Active Substance: GABAPENTIN
     Dosage: 2500 MG, QD
     Route: 048
     Dates: start: 20140521
  3. HALDOL [Suspect]
     Active Substance: HALOPERIDOL
     Indication: BIPOLAR DISORDER
     Dosage: 5 MG, QD
     Route: 048
     Dates: start: 20140521, end: 20140605
  4. GABAPENTIN. [Suspect]
     Active Substance: GABAPENTIN
     Indication: BIPOLAR DISORDER
     Dosage: 1100 MG, QD
     Route: 048
     Dates: start: 20140416

REACTIONS (5)
  - Dysphagia [Unknown]
  - Weight decreased [Unknown]
  - Psychomotor hyperactivity [Unknown]
  - Condition aggravated [Unknown]
  - Dysarthria [Unknown]

NARRATIVE: CASE EVENT DATE: 20140523
